FAERS Safety Report 6902395-3 (Version None)
Quarter: 2010Q3

REPORT INFORMATION
  Report Type: 
  Country: None (occurrence: None)
  Receive Date: 20100803
  Receipt Date: 20080519
  Transmission Date: 20110219
  Serious: No
  Sender: FDA-Public Use
  Company Number: US-PFIZER INC-2008026446

PATIENT
  Sex: Female
  Weight: 54.4 kg

DRUGS (7)
  1. LYRICA [Suspect]
     Indication: FIBROMYALGIA
     Dates: start: 20080315
  2. SYNTHROID [Concomitant]
  3. LIPITOR [Concomitant]
  4. NIASPAN [Concomitant]
  5. BROMOCRIPTINE [Concomitant]
  6. MINOCYCLINE HCL [Concomitant]
  7. NASONEX [Concomitant]

REACTIONS (3)
  - DISORDER OF GLOBE [None]
  - OCULAR HYPERAEMIA [None]
  - VISION BLURRED [None]
